FAERS Safety Report 4623659-2 (Version None)
Quarter: 2005Q1

REPORT INFORMATION
  Report Type: 
  Country: None (occurrence: None)
  Receive Date: 20050331
  Receipt Date: 20050322
  Transmission Date: 20050727
  Serious: Yes (Hospitalization)
  Sender: FDA-Public Use
  Company Number: AT-JNJFOC-20050305238

PATIENT
  Age: 61 Year
  Sex: Female
  Weight: 79 kg

DRUGS (4)
  1. REMICADE [Suspect]
     Indication: CROHN'S DISEASE
     Route: 042
  2. AZATHIOPRINE [Concomitant]
     Route: 049
  3. PREDNISOLONE [Concomitant]
     Route: 049
  4. MESALAMINE [Concomitant]
     Indication: CROHN'S DISEASE
     Route: 049

REACTIONS (1)
  - PULMONARY TUBERCULOSIS [None]
